FAERS Safety Report 14657477 (Version 1)
Quarter: 2018Q1

REPORT INFORMATION
  Report Type: Report from Study
  Country: None (occurrence: RO)
  Receive Date: 20180320
  Receipt Date: 20180320
  Transmission Date: 20180509
  Serious: Yes (Other)
  Sender: FDA-Public Use
  Company Number: RO-ABBVIE-18K-135-2288448-00

PATIENT
  Age: 66 Year
  Sex: Female

DRUGS (15)
  1. VESSEL DUE [Concomitant]
     Indication: PERIPHERAL VENOUS DISEASE
     Route: 048
  2. INFLECTRA [Suspect]
     Active Substance: INFLIXIMAB-DYYB
     Indication: PSORIASIS
     Route: 065
  3. DETRALEX [Concomitant]
     Active Substance: DIOSMIN\HESPERIDIN
     Indication: PERIPHERAL VENOUS DISEASE
     Route: 048
  4. MICARDIS [Concomitant]
     Active Substance: TELMISARTAN
     Indication: MITRAL VALVE INCOMPETENCE
  5. HUMIRA [Suspect]
     Active Substance: ADALIMUMAB
     Route: 058
     Dates: start: 201706
  6. DIUREX [Concomitant]
     Active Substance: AMILORIDE HYDROCHLORIDE\HYDROCHLOROTHIAZIDE
     Indication: HYPERTENSION
     Route: 048
  7. ASPIRIN CARDIO [Concomitant]
     Active Substance: ASPIRIN
     Indication: MITRAL VALVE INCOMPETENCE
  8. PLAVIX [Concomitant]
     Active Substance: CLOPIDOGREL BISULFATE
     Indication: MITRAL VALVE INCOMPETENCE
  9. HUMIRA [Suspect]
     Active Substance: ADALIMUMAB
     Indication: PSORIASIS
     Route: 058
     Dates: start: 20080515, end: 201701
  10. VESSEL DUE [Concomitant]
     Indication: MITRAL VALVE INCOMPETENCE
  11. METHOTREXATE. [Concomitant]
     Active Substance: METHOTREXATE
     Indication: PSORIATIC ARTHROPATHY
     Route: 051
     Dates: start: 2017
  12. BETALOC ZOK [Concomitant]
     Active Substance: METOPROLOL SUCCINATE
     Indication: HYPERTENSION
     Route: 048
  13. PLAVIX [Concomitant]
     Active Substance: CLOPIDOGREL BISULFATE
     Indication: PERIPHERAL VENOUS DISEASE
     Route: 048
  14. MICARDIS [Concomitant]
     Active Substance: TELMISARTAN
     Indication: PERIPHERAL VENOUS DISEASE
     Route: 048
  15. ASPIRIN CARDIO [Concomitant]
     Active Substance: ASPIRIN
     Indication: PERIPHERAL VENOUS DISEASE
     Route: 048

REACTIONS (8)
  - Foot deformity [Not Recovered/Not Resolved]
  - Arthralgia [Recovering/Resolving]
  - Hepatomegaly [Not Recovered/Not Resolved]
  - Type 1 diabetes mellitus [Not Recovered/Not Resolved]
  - Anaphylactic shock [Recovered/Resolved]
  - Intentional product misuse [Recovered/Resolved]
  - Finger deformity [Not Recovered/Not Resolved]
  - Oedema peripheral [Recovering/Resolving]

NARRATIVE: CASE EVENT DATE: 2016
